FAERS Safety Report 15054064 (Version 2)
Quarter: 2023Q4

REPORT INFORMATION
  Report Type: Report from Study
  Country: BR (occurrence: BR)
  Receive Date: 20180622
  Receipt Date: 20231027
  Transmission Date: 20240110
  Serious: Yes (Hospitalization, Other)
  Sender: FDA-Public Use
  Company Number: PHHY2018BR003874

PATIENT
  Age: 69 Year
  Sex: Female
  Weight: 61 kg

DRUGS (3)
  1. KISQALI [Suspect]
     Active Substance: RIBOCICLIB
     Indication: Breast cancer
     Dosage: 600 MG, QD
     Route: 048
     Dates: start: 20180411, end: 20180515
  2. KISQALI [Suspect]
     Active Substance: RIBOCICLIB
     Dosage: 400 MG, QD
     Route: 048
     Dates: start: 20180524
  3. LETROZOLE [Concomitant]
     Active Substance: LETROZOLE
     Indication: Breast cancer
     Dosage: 2.5 MG
     Route: 048
     Dates: start: 201804

REACTIONS (11)
  - Neutropenia [Recovered/Resolved]
  - Pneumonia [Recovering/Resolving]
  - Productive cough [Recovering/Resolving]
  - Sputum discoloured [Recovering/Resolving]
  - Transferrin saturation abnormal [Recovering/Resolving]
  - Pyrexia [Recovering/Resolving]
  - Tracheobronchitis [Recovering/Resolving]
  - Neutropenia [Recovered/Resolved]
  - Neutropenia [Recovering/Resolving]
  - Breast cancer [Unknown]
  - Malignant neoplasm progression [Unknown]

NARRATIVE: CASE EVENT DATE: 20180425
